FAERS Safety Report 24039633 (Version 1)
Quarter: 2024Q3

REPORT INFORMATION
  Report Type: Spontaneous
  Country: KR (occurrence: KR)
  Receive Date: 20240702
  Receipt Date: 20240702
  Transmission Date: 20241017
  Serious: Yes (Other)
  Sender: Visiox
  Company Number: KR-Santen Korea-2024-KOR-006224

PATIENT
  Sex: Female

DRUGS (1)
  1. OMIDENEPAG ISOPROPYL [Suspect]
     Active Substance: OMIDENEPAG ISOPROPYL
     Indication: Product used for unknown indication
     Dosage: DOSAGE UNKNOWN
     Route: 047
     Dates: end: 20240614

REACTIONS (1)
  - Visual acuity reduced [Not Recovered/Not Resolved]
